FAERS Safety Report 5745225-8 (Version None)
Quarter: 2008Q2

REPORT INFORMATION
  Report Type: 
  Country: None (occurrence: None)
  Receive Date: 20080521
  Receipt Date: 20080307
  Transmission Date: 20081010
  Serious: Yes (Hospitalization)
  Sender: FDA-Public Use
  Company Number: B0509390A

PATIENT
  Age: 53 Year
  Sex: Female
  Weight: 60 kg

DRUGS (2)
  1. MALARONE [Suspect]
     Indication: MALARIA PROPHYLAXIS
     Route: 048
     Dates: start: 20031219, end: 20040108
  2. FLUOXETINE [Concomitant]
     Dosage: 10MG TWICE PER DAY
     Route: 048

REACTIONS (1)
  - SKIN EXFOLIATION [None]
